FAERS Safety Report 13460156 (Version 1)
Quarter: 2017Q2

REPORT INFORMATION
  Report Type: Spontaneous
  Country: PL (occurrence: PL)
  Receive Date: 20170420
  Receipt Date: 20170420
  Transmission Date: 20170830
  Serious: Yes (Hospitalization, Other)
  Sender: FDA-Public Use
  Company Number: PL-SUN PHARMACEUTICAL INDUSTRIES LTD-2017RR-138281

PATIENT
  Age: 78 Year
  Sex: Female

DRUGS (16)
  1. CLARITHROMYCIN. [Suspect]
     Active Substance: CLARITHROMYCIN
     Indication: UPPER RESPIRATORY TRACT INFECTION
     Dosage: 500 MG, BID
     Route: 065
  2. QUETIAPINE. [Interacting]
     Active Substance: QUETIAPINE
     Indication: SLEEP DISORDER
  3. PERAZIN - PERAZINE DIMALONATE [Interacting]
     Active Substance: PERAZINE DIMALONATE
     Indication: ABNORMAL BEHAVIOUR
     Dosage: 200 MG/D
     Route: 065
  4. HYDROXYZINE [Interacting]
     Active Substance: HYDROXYZINE HYDROCHLORIDE
     Indication: SLEEP DISORDER
  5. PARACETAMOL [Interacting]
     Active Substance: ACETAMINOPHEN
     Indication: PRODUCT USED FOR UNKNOWN INDICATION
     Dosage: UNK
     Route: 065
  6. ACATAR ACTITABS [Interacting]
     Active Substance: PSEUDOEPHEDRINE\TRIPROLIDINE
     Indication: NASOPHARYNGITIS
     Dosage: UNK
     Route: 065
  7. PERAZIN - PERAZINE DIMALONATE [Interacting]
     Active Substance: PERAZINE DIMALONATE
     Indication: SLEEP DISORDER
  8. CHLORPROTIXINE [Interacting]
     Active Substance: CHLORPROTHIXENE
     Indication: SLEEP DISORDER
  9. TRAMADOL. [Interacting]
     Active Substance: TRAMADOL
     Indication: PRODUCT USED FOR UNKNOWN INDICATION
     Dosage: UNK
     Route: 065
  10. NORMATENS (CLOPAMIDE\DIHYDROERGOCRISTINE\RESERPINE) [Interacting]
     Active Substance: CLOPAMIDE\DIHYDROERGOCRISTINE\RESERPINE
     Indication: HYPERTENSION
     Dosage: UNK
     Route: 065
  11. XYLOMETAZOLINE [Interacting]
     Active Substance: XYLOMETAZOLINE
     Indication: UPPER RESPIRATORY TRACT INFECTION
     Dosage: UNK
     Route: 045
  12. ACATAR ACTITABS [Interacting]
     Active Substance: PSEUDOEPHEDRINE\TRIPROLIDINE
     Indication: INFLUENZA
  13. QUETIAPINE. [Interacting]
     Active Substance: QUETIAPINE
     Indication: ABNORMAL BEHAVIOUR
     Dosage: 200 MG/D
     Route: 065
  14. CHLORPROTIXINE [Interacting]
     Active Substance: CHLORPROTHIXENE
     Indication: ABNORMAL BEHAVIOUR
     Dosage: 150 MG/D
     Route: 065
  15. HYDROXYZINE [Interacting]
     Active Substance: HYDROXYZINE HYDROCHLORIDE
     Indication: ABNORMAL BEHAVIOUR
     Dosage: 50 MG, PERIODICALLY AT NIGHT
     Route: 065
  16. METAMIZOL [Interacting]
     Active Substance: METAMIZOLE SODIUM
     Indication: PRODUCT USED FOR UNKNOWN INDICATION
     Dosage: UNK
     Route: 065

REACTIONS (2)
  - Neuroleptic malignant syndrome [Unknown]
  - Drug interaction [Unknown]
